FAERS Safety Report 5362142-6 (Version None)
Quarter: 2007Q2

REPORT INFORMATION
  Report Type: 
  Country: None (occurrence: None)
  Receive Date: 20070618
  Receipt Date: 20070618
  Transmission Date: 20071010
  Serious: No
  Sender: FDA-Public Use
  Company Number: None

PATIENT
  Age: 61 Year
  Sex: Female

DRUGS (2)
  1. CALCIUM GLUCONATE [Suspect]
     Dosage: INJECTABLE
  2. POTASSIUM PHOSPHATES [Suspect]
     Dosage: INJECTABLE

REACTIONS (7)
  - CARDIO-RESPIRATORY ARREST [None]
  - CIRCUMSTANCE OR INFORMATION CAPABLE OF LEADING TO MEDICATION ERROR [None]
  - DYSPNOEA [None]
  - FAT EMBOLISM [None]
  - INFUSION RELATED REACTION [None]
  - MEDICATION ERROR [None]
  - PALPITATIONS [None]
